FAERS Safety Report 25111828 (Version 1)
Quarter: 2025Q1

REPORT INFORMATION
  Report Type: Spontaneous
  Country: CA (occurrence: CA)
  Receive Date: 20250324
  Receipt Date: 20250324
  Transmission Date: 20250409
  Serious: Yes (Other)
  Sender: DIFGEN PHARMACEUTICALS LLC
  Company Number: None

PATIENT
  Age: 32 Year
  Sex: Female

DRUGS (16)
  1. VALIUM [Suspect]
     Active Substance: DIAZEPAM
     Indication: Drug withdrawal syndrome
     Route: 065
  2. VALIUM [Suspect]
     Active Substance: DIAZEPAM
     Indication: Drug withdrawal syndrome
     Route: 065
  3. VALIUM [Suspect]
     Active Substance: DIAZEPAM
     Indication: Drug withdrawal syndrome
     Route: 065
  4. VALIUM [Suspect]
     Active Substance: DIAZEPAM
     Indication: Drug withdrawal syndrome
     Route: 065
  5. VALIUM [Suspect]
     Active Substance: DIAZEPAM
     Indication: Drug withdrawal syndrome
     Route: 065
  6. VALIUM [Suspect]
     Active Substance: DIAZEPAM
     Indication: Drug withdrawal syndrome
     Route: 065
  7. VALIUM [Suspect]
     Active Substance: DIAZEPAM
     Indication: Drug withdrawal syndrome
     Route: 065
  8. VALIUM [Suspect]
     Active Substance: DIAZEPAM
     Indication: Drug withdrawal syndrome
     Route: 065
  9. VALIUM [Suspect]
     Active Substance: DIAZEPAM
     Indication: Drug withdrawal syndrome
     Route: 065
  10. BACLOFEN [Suspect]
     Active Substance: BACLOFEN
     Indication: Drug withdrawal syndrome
     Route: 065
  11. BACLOFEN [Suspect]
     Active Substance: BACLOFEN
     Indication: Drug withdrawal syndrome
     Route: 065
  12. BACLOFEN [Suspect]
     Active Substance: BACLOFEN
     Indication: Drug withdrawal syndrome
     Route: 065
  13. BACLOFEN [Suspect]
     Active Substance: BACLOFEN
     Indication: Drug withdrawal syndrome
     Route: 065
  14. SERTRALINE HYDROCHLORIDE [Suspect]
     Active Substance: SERTRALINE HYDROCHLORIDE
     Indication: Drug withdrawal syndrome
     Route: 065
  15. METHAMPHETAMINE HYDROCHLORIDE [Suspect]
     Active Substance: METHAMPHETAMINE HYDROCHLORIDE
     Indication: Anxiolytic therapy
     Route: 065
  16. NICOTINE [Suspect]
     Active Substance: NICOTINE
     Indication: Drug withdrawal syndrome
     Route: 065

REACTIONS (3)
  - Premature delivery [Unknown]
  - Product use in unapproved indication [Unknown]
  - Maternal exposure during pregnancy [Unknown]
